FAERS Safety Report 15832121 (Version 2)
Quarter: 2019Q1

REPORT INFORMATION
  Report Type: Report from Study
  Country: US (occurrence: CA)
  Receive Date: 20190116
  Receipt Date: 20190125
  Transmission Date: 20190417
  Serious: Yes (Other)
  Sender: FDA-Public Use
  Company Number: CA-BIOGEN-2019BI00684173

PATIENT
  Sex: Male

DRUGS (1)
  1. TYSABRI [Suspect]
     Active Substance: NATALIZUMAB
     Indication: MULTIPLE SCLEROSIS
     Dosage: INFUSED FOR OVER 1 HR
     Route: 042
     Dates: start: 20150424

REACTIONS (1)
  - Type 2 diabetes mellitus [Unknown]
